FAERS Safety Report 8457263-5 (Version None)
Quarter: 2012Q2

REPORT INFORMATION
  Report Type: 
  Country: None (occurrence: None)
  Receive Date: 20120621
  Receipt Date: 20120617
  Transmission Date: 20120825
  Serious: Yes (Other)
  Sender: FDA-Public Use
  Company Number: EG-ROCHE-1078378

PATIENT
  Age: 39 Year
  Sex: Male

DRUGS (4)
  1. CALCIUM [Concomitant]
  2. IMURAN [Concomitant]
  3. MABTHERA [Suspect]
     Indication: VASCULITIS
     Route: 041
     Dates: start: 20120526, end: 20120602
  4. VITAMIN D [Concomitant]

REACTIONS (6)
  - CONVULSION [None]
  - HAEMOGLOBIN DECREASED [None]
  - PYREXIA [None]
  - LOSS OF CONSCIOUSNESS [None]
  - RASH [None]
  - BLINDNESS TRANSIENT [None]
